FAERS Safety Report 5622297-2 (Version None)
Quarter: 2008Q1

REPORT INFORMATION
  Report Type: 
  Country: None (occurrence: None)
  Receive Date: 20080206
  Receipt Date: 20080128
  Transmission Date: 20080703
  Serious: No
  Sender: FDA-Public Use
  Company Number: 2007BI026985

PATIENT
  Age: 49 Year
  Sex: Female

DRUGS (3)
  1. AVONEX [Suspect]
     Indication: MULTIPLE SCLEROSIS
     Dosage: 30 UG;QW;IM
     Route: 030
     Dates: start: 20071114
  2. ASPIRIN [Concomitant]
  3. SIMVASTATIN [Concomitant]

REACTIONS (2)
  - CONVULSION [None]
  - SYNCOPE [None]
